FAERS Safety Report 11667625 (Version 1)
Quarter: 2015Q4

REPORT INFORMATION
  Report Type: Spontaneous
  Country: US (occurrence: US)
  Receive Date: 20151027
  Receipt Date: 20151027
  Transmission Date: 20160304
  Serious: No
  Sender: FDA-Public Use
  Company Number: US-ELI_LILLY_AND_COMPANY-US201003000530

PATIENT
  Sex: Female

DRUGS (1)
  1. FORTEO [Suspect]
     Active Substance: TERIPARATIDE
     Indication: OSTEOPOROSIS
     Dosage: 20 UG, DAILY (1/D)
     Dates: start: 201002, end: 201002

REACTIONS (8)
  - Sinusitis [Unknown]
  - Asthenia [Unknown]
  - Nausea [Unknown]
  - Rhinorrhoea [Unknown]
  - Sneezing [Unknown]
  - Headache [Unknown]
  - Cough [Unknown]
  - Dysstasia [Unknown]

NARRATIVE: CASE EVENT DATE: 201002
